FAERS Safety Report 17299328 (Version 1)
Quarter: 2020Q1

REPORT INFORMATION
  Report Type: Spontaneous
  Country: US (occurrence: US)
  Receive Date: 20200121
  Receipt Date: 20200121
  Transmission Date: 20200409
  Serious: No
  Sender: FDA-Public Use
  Company Number: US-TEIKOKU PHARMA USA-TPU2020-00010

PATIENT
  Sex: Female
  Weight: 74 kg

DRUGS (4)
  1. LIDOCAINE PATCH [Suspect]
     Active Substance: LIDOCAINE
     Indication: MUSCLE SPASMS
     Route: 061
     Dates: start: 20191218
  2. DIAZEPAM. [Concomitant]
     Active Substance: DIAZEPAM
     Indication: MUSCLE RELAXANT THERAPY
     Dates: start: 20191218
  3. MAPAP [Concomitant]
     Active Substance: ACETAMINOPHEN
     Indication: PAIN
     Dates: start: 20191218
  4. LIDOCAINE PATCH [Suspect]
     Active Substance: LIDOCAINE
     Indication: PAIN

REACTIONS (1)
  - Wrong technique in product usage process [Unknown]
